FAERS Safety Report 7994981-7 (Version None)
Quarter: 2011Q4

REPORT INFORMATION
  Report Type: 
  Country: None (occurrence: None)
  Receive Date: 20111220
  Receipt Date: 20111215
  Transmission Date: 20120403
  Serious: Yes (Hospitalization)
  Sender: FDA-Public Use
  Company Number: US-GILEAD-2011-0041230

PATIENT
  Sex: Female

DRUGS (5)
  1. DYAZIDE [Concomitant]
  2. TOPROL-XL [Concomitant]
  3. BONIVA [Concomitant]
  4. LETAIRIS [Suspect]
     Indication: PRODUCT USED FOR UNKNOWN INDICATION
     Route: 048
     Dates: start: 20110120
  5. COUMADIN [Concomitant]

REACTIONS (3)
  - HERPES ZOSTER [None]
  - HYPONATRAEMIA [None]
  - ANAEMIA [None]
